FAERS Safety Report 7735202-X (Version None)
Quarter: 2011Q3

REPORT INFORMATION
  Report Type: 
  Country: None (occurrence: None)
  Receive Date: 20110907
  Receipt Date: 20110829
  Transmission Date: 20111222
  Serious: Yes (Other)
  Sender: FDA-Public Use
  Company Number: SG-SANOFI-AVENTIS-2011SA055062

PATIENT
  Age: 16 Year
  Sex: Male

DRUGS (2)
  1. ROCEPHIN [Suspect]
     Route: 065
  2. FLAGYL [Suspect]
     Route: 065

REACTIONS (6)
  - DYSPNOEA [None]
  - HYPOTENSION [None]
  - ABDOMINAL PAIN [None]
  - RASH [None]
  - EYE SWELLING [None]
  - WHEEZING [None]
